FAERS Safety Report 9414224 (Version 1)
Quarter: 2013Q3

REPORT INFORMATION
  Report Type: Report from Study
  Country: CA (occurrence: CA)
  Receive Date: 20130723
  Receipt Date: 20130723
  Transmission Date: 20140515
  Serious: Yes (Other)
  Sender: FDA-Public Use
  Company Number: CA-SANOFI-AVENTIS-200211338GDDC

PATIENT
  Age: 63 Year
  Sex: Female
  Weight: 68 kg

DRUGS (7)
  1. DOCETAXEL [Suspect]
     Indication: BREAST CANCER
     Route: 042
     Dates: start: 20020118, end: 20020118
  2. DOCETAXEL [Suspect]
     Indication: BREAST CANCER
     Route: 042
     Dates: start: 20020208, end: 20020208
  3. DOXORUBICIN [Suspect]
     Indication: BREAST CANCER
     Route: 042
  4. CYCLOPHOSPHAMIDE [Suspect]
     Indication: BREAST CANCER
     Route: 042
  5. DECADRON [Concomitant]
     Route: 048
     Dates: start: 20020207, end: 20020209
  6. ZOFRAN [Concomitant]
     Route: 048
     Dates: start: 20020208, end: 20020208
  7. STEMETIL [Concomitant]
     Route: 048
     Dates: start: 20020208, end: 20020208

REACTIONS (4)
  - Cardiomyopathy [Recovered/Resolved]
  - Dyspnoea exertional [Recovered/Resolved]
  - Fatigue [Recovered/Resolved]
  - Arrhythmia [Recovered/Resolved]
